FAERS Safety Report 8797287 (Version 1)
Quarter: 2012Q4

REPORT INFORMATION
  Report Type: 
  Country: JP (occurrence: JP)
  Receive Date: 20120919
  Receipt Date: 20120919
  Transmission Date: 20130627
  Serious: Yes (Other)
  Sender: FDA-Public Use
  Company Number: JP-ACTELION-A-CH2012-71561

PATIENT
  Age: 32 Year
  Sex: Female

DRUGS (6)
  1. TRACLEER [Suspect]
     Indication: PULMONARY ARTERIAL HYPERTENSION
     Dosage: 62.5 mg, bid
     Route: 048
  2. TRACLEER [Suspect]
     Dosage: 125 mg, bid
     Route: 048
  3. SILDENAFIL [Concomitant]
  4. FUROSEMIDE [Concomitant]
  5. DOBUTAMINE [Concomitant]
  6. EPOPROSTENOL [Concomitant]

REACTIONS (2)
  - Circulatory collapse [Recovering/Resolving]
  - Infection [Recovering/Resolving]
